FAERS Safety Report 21092794 (Version 1)
Quarter: 2022Q3

REPORT INFORMATION
  Report Type: Spontaneous
  Country: SE (occurrence: SE)
  Receive Date: 20220718
  Receipt Date: 20220718
  Transmission Date: 20221027
  Serious: Yes (Death, Hospitalization, Other)
  Sender: FDA-Public Use
  Company Number: None

PATIENT
  Age: 1 Decade
  Sex: Male

DRUGS (2)
  1. LEVETIRACETAM [Suspect]
     Active Substance: LEVETIRACETAM
  2. RISPERIDONE [Suspect]
     Active Substance: RISPERIDONE

REACTIONS (11)
  - Agitation [Fatal]
  - Screaming [Fatal]
  - Hallucination [Fatal]
  - Clonic convulsion [Fatal]
  - Dysphagia [Fatal]
  - Tonic clonic movements [Fatal]
  - Urinary retention [Fatal]
  - Dehydration [Fatal]
  - Condition aggravated [Fatal]
  - Dystonia [Fatal]
  - Anxiety [Fatal]
